FAERS Safety Report 8052387 (Version 4)
Quarter: 2013Q4

REPORT INFORMATION
  Report Type: Spontaneous
  Country: US (occurrence: US)
  Receive Date: 20110725
  Receipt Date: 20131029
  Transmission Date: 20140711
  Serious: Yes (Hospitalization, Other)
  Sender: FDA-Public Use
  Company Number: US-ROCHE-770005

PATIENT
  Age: 41 Year
  Sex: Female
  Weight: 59 kg

DRUGS (1)
  1. ACCUTANE [Suspect]
     Indication: ACNE
     Route: 065
     Dates: start: 1988, end: 1989

REACTIONS (8)
  - Crohn^s disease [Unknown]
  - Anxiety [Unknown]
  - Inflammatory bowel disease [Unknown]
  - Intestinal obstruction [Unknown]
  - Anal fistula [Unknown]
  - Haemorrhoids [Unknown]
  - Large intestine polyp [Unknown]
  - Perirectal abscess [Unknown]
